FAERS Safety Report 13601951 (Version 2)
Quarter: 2017Q2

REPORT INFORMATION
  Report Type: Spontaneous
  Country: IS (occurrence: IS)
  Receive Date: 20170601
  Receipt Date: 20170623
  Transmission Date: 20170830
  Serious: Yes (Hospitalization)
  Sender: FDA-Public Use
  Company Number: IS-PFIZER INC-2017236915

PATIENT
  Age: 47 Year
  Sex: Female

DRUGS (2)
  1. CHAMPIX [Suspect]
     Active Substance: VARENICLINE TARTRATE
     Indication: SMOKING CESSATION THERAPY
     Dosage: UNK
     Dates: start: 201203
  2. SOBRIL [Concomitant]
     Active Substance: OXAZEPAM
     Dosage: UNK
     Route: 048

REACTIONS (10)
  - Neutropenia [Not Recovered/Not Resolved]
  - Hypokalaemia [Recovered/Resolved]
  - Bone marrow failure [Not Recovered/Not Resolved]
  - Cyanosis [Unknown]
  - Hyponatraemia [Recovered/Resolved]
  - Splenomegaly [Unknown]
  - Adrenomegaly [Unknown]
  - Lymphopenia [Unknown]
  - Pyrexia [Recovered/Resolved]
  - Leukopenia [Unknown]

NARRATIVE: CASE EVENT DATE: 20120408
